FAERS Safety Report 4598989-3 (Version None)
Quarter: 2005Q1

REPORT INFORMATION
  Report Type: 
  Country: None (occurrence: None)
  Receive Date: 20050304
  Receipt Date: 20050222
  Transmission Date: 20050727
  Serious: Yes (Death)
  Sender: FDA-Public Use
  Company Number: LB-MERCK-0502USA03231

PATIENT
  Age: 85 Year
  Sex: Female
  Weight: 75 kg

DRUGS (6)
  1. INVANZ [Suspect]
     Indication: PROPHYLAXIS
     Route: 042
     Dates: start: 20050120, end: 20050120
  2. CORDARONE [Concomitant]
     Indication: CARDIAC ARREST
     Route: 042
  3. ATROVENT [Concomitant]
     Route: 065
  4. LASIX [Concomitant]
     Indication: BLOOD PRESSURE
     Route: 042
  5. LOSEC (OMEPRAZOLE) [Concomitant]
     Route: 042
  6. HEPARIN [Concomitant]
     Indication: DEEP VEIN THROMBOSIS
     Route: 042

REACTIONS (1)
  - CARDIAC ARREST [None]
